FAERS Safety Report 7036259-4 (Version None)
Quarter: 2010Q4

REPORT INFORMATION
  Report Type: 
  Country: None (occurrence: None)
  Receive Date: 20101008
  Receipt Date: 20100428
  Transmission Date: 20110411
  Serious: Yes (Other)
  Sender: FDA-Public Use
  Company Number: GB-ABBOTT-10P-167-0639318-00

PATIENT
  Sex: Male

DRUGS (6)
  1. HUMIRA [Suspect]
     Indication: PSORIASIS
     Route: 058
     Dates: start: 20100118
  2. METHOTREXATE [Concomitant]
     Indication: PSORIASIS
     Route: 048
  3. FOLIC ACID [Concomitant]
     Indication: PSORIASIS
     Route: 048
  4. METFORMIN [Concomitant]
     Indication: DIABETES MELLITUS
     Route: 048
     Dates: start: 20100101
  5. CILZLOPRAM [Concomitant]
     Indication: DEPRESSION
  6. AMLODIPINE [Concomitant]
     Indication: BLOOD PRESSURE INCREASED

REACTIONS (3)
  - COUGH [None]
  - DYSPNOEA [None]
  - RALES [None]
